FAERS Safety Report 17582470 (Version 1)
Quarter: 2020Q1

REPORT INFORMATION
  Report Type: Report from Study
  Country: None (occurrence: US)
  Receive Date: 20200325
  Receipt Date: 20200325
  Transmission Date: 20200409
  Serious: Yes (Hospitalization)
  Sender: FDA-Public Use
  Company Number: US-ABBVIE-20P-163-3330644-00

PATIENT
  Age: 65 Year
  Sex: Male
  Weight: 82.3 kg

DRUGS (2)
  1. IBRUTINIB [Suspect]
     Active Substance: IBRUTINIB
     Indication: CHRONIC LYMPHOCYTIC LEUKAEMIA
     Route: 048
     Dates: start: 20141114
  2. IBRUTINIB [Suspect]
     Active Substance: IBRUTINIB
     Dosage: ARM 2 CYCLE= 28 DAYS
     Route: 048
     Dates: start: 20200218

REACTIONS (3)
  - Skin infection [Not Recovered/Not Resolved]
  - Cardiac failure [Not Recovered/Not Resolved]
  - Ejection fraction decreased [Not Recovered/Not Resolved]

NARRATIVE: CASE EVENT DATE: 20200219
